FAERS Safety Report 12154035 (Version 1)
Quarter: 2016Q1

REPORT INFORMATION
  Report Type: Spontaneous
  Country: US (occurrence: None)
  Receive Date: 20160304
  Receipt Date: 20160304
  Transmission Date: 20160526
  Serious: Yes (Hospitalization, Disabling)
  Sender: FDA-Public Use
  Company Number: None

PATIENT
  Age: 49 Year
  Sex: Female
  Weight: 46.72 kg

DRUGS (8)
  1. SEREQUEL [Concomitant]
  2. IBUPROFEN. [Concomitant]
     Active Substance: IBUPROFEN
  3. ASPRIN [Concomitant]
     Active Substance: ASPIRIN
  4. XANAX [Concomitant]
     Active Substance: ALPRAZOLAM
  5. VITAMIN C [Concomitant]
     Active Substance: ASCORBIC ACID
  6. HARVONI [Suspect]
     Active Substance: LEDIPASVIR\SOFOSBUVIR
  7. PRISTIQ EXTENDED RELEASE [Concomitant]
     Active Substance: DESVENLAFAXINE SUCCINATE
  8. HYDROCODONE [Concomitant]
     Active Substance: HYDROCODONE

REACTIONS (6)
  - Dyspnoea [None]
  - Asthenia [None]
  - Weight decreased [None]
  - Vomiting [None]
  - Nausea [None]
  - Fear of death [None]

NARRATIVE: CASE EVENT DATE: 20150528
